FAERS Safety Report 7772307-1 (Version None)
Quarter: 2011Q3

REPORT INFORMATION
  Report Type: 
  Country: None (occurrence: None)
  Receive Date: 20110922
  Receipt Date: 20100826
  Transmission Date: 20111222
  Serious: No
  Sender: FDA-Public Use
  Company Number: US-ASTRAZENECA-2009UW00553

PATIENT
  Age: 515 Month
  Sex: Female

DRUGS (8)
  1. SEROQUEL [Suspect]
     Indication: BIPOLAR DISORDER
     Dosage: 300 TO 400 MG PER DAY
     Route: 048
     Dates: start: 20070301, end: 20071001
  2. SEROQUEL [Suspect]
     Route: 048
     Dates: start: 20070316
  3. HYDROCHLOROTHIAZIDE [Concomitant]
     Route: 048
     Dates: start: 20070316
  4. SEROQUEL [Suspect]
     Route: 048
     Dates: start: 20070316
  5. SEROQUEL [Suspect]
     Route: 048
     Dates: start: 20070316
  6. SEROQUEL [Suspect]
     Indication: ANXIETY
     Dosage: 300 TO 400 MG PER DAY
     Route: 048
     Dates: start: 20070301, end: 20071001
  7. SEROQUEL [Suspect]
     Indication: DEPRESSION
     Dosage: 300 TO 400 MG PER DAY
     Route: 048
     Dates: start: 20070301, end: 20071001
  8. TOPROL-XL [Concomitant]
     Indication: BLOOD PRESSURE
     Route: 048
     Dates: start: 20060929

REACTIONS (2)
  - DIABETES MELLITUS [None]
  - IMPAIRED FASTING GLUCOSE [None]
